FAERS Safety Report 21708985 (Version 2)
Quarter: 2023Q4

REPORT INFORMATION
  Report Type: Spontaneous
  Country: BE (occurrence: BE)
  Receive Date: 20221210
  Receipt Date: 20231211
  Transmission Date: 20240109
  Serious: Yes (Life-Threatening, Other)
  Sender: FDA-Public Use
  Company Number: BE-FAMHP-DHH-N2021-111349

PATIENT
  Age: 55 Year
  Sex: Male

DRUGS (2)
  1. DICLOFENAC [Suspect]
     Active Substance: DICLOFENAC
     Indication: Arthralgia
     Dosage: LEFT SHOULDER PAIN FOR 3 DAYS, TOOK IBUPROFEN, AND ON 11/27/21 DICLOFENAC
     Route: 048
  2. IBUPROFEN [Suspect]
     Active Substance: IBUPROFEN
     Indication: Arthralgia
     Dosage: LEFT SHOULDER PAIN FOR 3 DAYS, TOOK IBUPROFEN, AND ON 11/27/21 DICLOFENAC
     Route: 048

REACTIONS (1)
  - Cardiac arrest [Recovering/Resolving]

NARRATIVE: CASE EVENT DATE: 20211127
